FAERS Safety Report 10413307 (Version 1)
Quarter: 2014Q3

REPORT INFORMATION
  Report Type: Spontaneous
  Country: US (occurrence: None)
  Receive Date: 20140825
  Receipt Date: 20140825
  Transmission Date: 20150326
  Serious: Yes (Hospitalization)
  Sender: FDA-Public Use
  Company Number: IPC201408-000422

PATIENT
  Age: 36 Year
  Sex: Female

DRUGS (1)
  1. HYDROXYCHLOROQUINE SULFATE (HYDROXYCHLOROQUINE SULFATE) (HYDROXYCHLOROQUINE SULFATE) [Suspect]
     Active Substance: HYDROXYCHLOROQUINE SULFATE
     Indication: EOSINOPHILIC FASCIITIS

REACTIONS (6)
  - Septic shock [None]
  - Rash [None]
  - Platelet count decreased [None]
  - White blood cell disorder [None]
  - Blood culture positive [None]
  - Staphylococcus test positive [None]
